FAERS Safety Report 6414746-7 (Version None)
Quarter: 2009Q4

REPORT INFORMATION
  Report Type: 
  Country: None (occurrence: None)
  Receive Date: 20091026
  Receipt Date: 20091026
  Transmission Date: 20100525
  Serious: Yes (Hospitalization)
  Sender: FDA-Public Use
  Company Number: None

PATIENT
  Age: 72 Year
  Sex: Female
  Weight: 64.6 kg

DRUGS (1)
  1. EVEROLIMUS [Suspect]
     Indication: THYROID CANCER
     Dosage: 10 MG DAILY PO
     Route: 048
     Dates: start: 20091001, end: 20091023

REACTIONS (5)
  - HEART RATE INCREASED [None]
  - HYPOPHAGIA [None]
  - NAUSEA [None]
  - PYREXIA [None]
  - VOMITING [None]
